FAERS Safety Report 22055357 (Version 7)
Quarter: 2024Q1

REPORT INFORMATION
  Report Type: Spontaneous
  Country: US (occurrence: US)
  Receive Date: 20230302
  Receipt Date: 20240118
  Transmission Date: 20240410
  Serious: Yes (Other)
  Sender: FDA-Public Use
  Company Number: US-BRISTOL-MYERS SQUIBB COMPANY-2023-030269

PATIENT
  Age: 79 Year
  Sex: Female

DRUGS (2)
  1. LENALIDOMIDE [Suspect]
     Active Substance: LENALIDOMIDE
     Indication: Plasma cell myeloma
     Dosage: FREQUENCY :TAKE 1 CAPSULE BY MOUTH EVERY DAY FOR 14 DAYS EVERY 21 DAYS
     Route: 048
  2. LENALIDOMIDE [Suspect]
     Active Substance: LENALIDOMIDE
     Dosage: FREQUENCY :TAKE 1 CAPSULE BY MOUTH EVERY DAY FOR 14 DAYS EVERY 28 DAYS
     Route: 048
     Dates: start: 20230113

REACTIONS (9)
  - Photophobia [Not Recovered/Not Resolved]
  - Illness [Unknown]
  - Off label use [Unknown]
  - Constipation [Not Recovered/Not Resolved]
  - Ocular hyperaemia [Unknown]
  - Eye discharge [Unknown]
  - Eyelid margin crusting [Unknown]
  - Varicose vein [Unknown]
  - Dry eye [Recovered/Resolved]
